FAERS Safety Report 4769065-1 (Version None)
Quarter: 2005Q3

REPORT INFORMATION
  Report Type: 
  Country: None (occurrence: None)
  Receive Date: 20050914
  Receipt Date: 20050901
  Transmission Date: 20060218
  Serious: Yes (Other)
  Sender: FDA-Public Use
  Company Number: 2005124305

PATIENT
  Age: 78 Year
  Sex: Female
  Weight: 94.3482 kg

DRUGS (5)
  1. TUCKS HEMORRHOIDAL OINTMENT (ZINC OXIDE, MINERAL OIL, PRAMOXINE) [Suspect]
     Dosage: COER TP OF ENEMA BAG, RECTAL
     Dates: start: 20050801
  2. HYDROCHLOCORTISONE SODIUM SUCCINATE (HYDROCORTISONE SODIUM SUCCINATE) [Suspect]
     Indication: PAIN
     Dosage: UNSPECIFIED ^SHOT^, UNKNOWN
     Dates: start: 20050822, end: 20050822
  3. TRAMADOL HCL [Concomitant]
  4. MAGNESIUM HYDROXIDE (MAGNESIUM HYDROXIDE) [Concomitant]
  5. METAXALONE [Concomitant]

REACTIONS (6)
  - ANAL DISCOMFORT [None]
  - ANORECTAL DISORDER [None]
  - GASTROINTESTINAL OEDEMA [None]
  - RASH MACULAR [None]
  - SKIN BURNING SENSATION [None]
  - WEIGHT DECREASED [None]
